FAERS Safety Report 13139910 (Version 1)
Quarter: 2017Q1

REPORT INFORMATION
  Report Type: Spontaneous
  Country: MY (occurrence: MY)
  Receive Date: 20170123
  Receipt Date: 20170123
  Transmission Date: 20170428
  Serious: Yes (Death, Other)
  Sender: FDA-Public Use
  Company Number: MY-INCYTE CORPORATION-2017IN000442

PATIENT
  Sex: Female

DRUGS (1)
  1. JAKAVI [Suspect]
     Active Substance: RUXOLITINIB
     Indication: PRODUCT USED FOR UNKNOWN INDICATION
     Dosage: 20 MG, BID
     Route: 065

REACTIONS (2)
  - Central nervous system haemorrhage [Fatal]
  - Acute myeloid leukaemia [Unknown]
